FAERS Safety Report 4315200-9 (Version None)
Quarter: 2004Q1

REPORT INFORMATION
  Report Type: 
  Country: None (occurrence: None)
  Receive Date: 20040310
  Receipt Date: 20040224
  Transmission Date: 20041129
  Serious: Yes (Hospitalization)
  Sender: FDA-Public Use
  Company Number: US-JNJFOC-20031002277

PATIENT
  Age: 66 Year
  Sex: Female
  Weight: 67.1324 kg

DRUGS (10)
  1. REMICADE [Suspect]
     Indication: RHEUMATOID ARTHRITIS
     Dosage: 300 MG, 1 IN 1 TOTAL, INTRAVENOUS
     Route: 042
     Dates: start: 20030506, end: 20030506
  2. REMICADE [Suspect]
     Indication: RHEUMATOID ARTHRITIS
     Dosage: 300 MG, 1 IN 1 TOTAL, INTRAVENOUS
     Route: 042
     Dates: start: 20030515, end: 20030515
  3. REMICADE [Suspect]
     Indication: RHEUMATOID ARTHRITIS
     Dosage: 300 MG, 1 IN 1 TOTAL, INTRAVENOUS
     Route: 042
     Dates: start: 20030610, end: 20030610
  4. REMICADE [Suspect]
     Indication: RHEUMATOID ARTHRITIS
     Dosage: 300 MG, 1 IN 1 TOTAL, INTRAVENOUS
     Route: 042
     Dates: start: 20030805, end: 20030805
  5. REMICADE [Suspect]
     Indication: RHEUMATOID ARTHRITIS
     Dosage: 300 MG, 1 IN 1 TOTAL, INTRAVENOUS
     Route: 042
     Dates: start: 20030930, end: 20030930
  6. METHOTREXATE [Concomitant]
  7. SULFASALAZINE [Concomitant]
  8. AZMACORT [Concomitant]
  9. COMBIVENT [Concomitant]
  10. ACETAMINOPHEN [Concomitant]

REACTIONS (11)
  - BLOOD PRESSURE INCREASED [None]
  - CHRONIC OBSTRUCTIVE AIRWAYS DISEASE [None]
  - CYANOSIS [None]
  - DYSPNOEA [None]
  - ERYTHEMA [None]
  - FLUSHING [None]
  - HEART RATE INCREASED [None]
  - HYPOXIA [None]
  - MUSCULOSKELETAL STIFFNESS [None]
  - PAIN [None]
  - PO2 DECREASED [None]
